FAERS Safety Report 8956173 (Version 1)
Quarter: 2012Q4

REPORT INFORMATION
  Report Type: 
  Country: US (occurrence: US)
  Receive Date: 20121210
  Receipt Date: 20121210
  Transmission Date: 20130627
  Serious: No
  Sender: FDA-Public Use
  Company Number: US-009507513-1211USA008116

PATIENT
  Sex: Female

DRUGS (2)
  1. MIRALAX [Suspect]
     Indication: COLONOSCOPY
     Dosage: 17 g, Once
     Route: 048
  2. MIRALAX [Suspect]
     Indication: PRODUCT USED FOR UNKNOWN INDICATION
     Dosage: 17 g, bid
     Route: 048

REACTIONS (6)
  - Alopecia [Unknown]
  - Hair texture abnormal [Unknown]
  - Incorrect drug administration duration [Unknown]
  - Overdose [Unknown]
  - Off label use [Unknown]
  - Drug ineffective [Unknown]
